FAERS Safety Report 4780008-7 (Version None)
Quarter: 2005Q3

REPORT INFORMATION
  Report Type: 
  Country: None (occurrence: None)
  Receive Date: 20050927
  Receipt Date: 20050921
  Transmission Date: 20060218
  Serious: Yes (Death)
  Sender: FDA-Public Use
  Company Number: 2005AC01434

PATIENT
  Age: 29 Year
  Sex: Female

DRUGS (10)
  1. DIPRIVAN [Suspect]
     Indication: ANAESTHESIA
     Route: 042
  2. DIPRIVAN [Suspect]
     Indication: REVERSAL OF SEDATION
     Route: 042
  3. DIPRIVAN [Suspect]
     Dosage: 1 - 2
     Route: 042
  4. DIPRIVAN [Suspect]
     Dosage: 1 - 2
     Route: 042
  5. ULTIVA [Concomitant]
     Indication: ANAESTHESIA
  6. NIMBEX [Concomitant]
     Indication: MUSCLE RELAXANT THERAPY
  7. MANNITOL [Concomitant]
  8. DEXAMETHASONE [Concomitant]
  9. RINGER'S [Concomitant]
     Indication: FLUID REPLACEMENT
     Route: 042
  10. ISOTONIC SOLUTIONS [Concomitant]

REACTIONS (29)
  - ACTIVATED PARTIAL THROMBOPLASTIN TIME SHORTENED [None]
  - BILIRUBIN CONJUGATED INCREASED [None]
  - BLOOD AMYLASE [None]
  - BLOOD AMYLASE INCREASED [None]
  - BLOOD BILIRUBIN INCREASED [None]
  - BLOOD BILIRUBIN UNCONJUGATED INCREASED [None]
  - BLOOD CREATINE PHOSPHOKINASE INCREASED [None]
  - BLOOD FIBRINOGEN INCREASED [None]
  - BLOOD LACTATE DEHYDROGENASE INCREASED [None]
  - BRAIN DEATH [None]
  - CEREBRAL HAEMORRHAGE [None]
  - CHROMATURIA [None]
  - DISSEMINATED INTRAVASCULAR COAGULATION [None]
  - GAMMA-GLUTAMYLTRANSFERASE INCREASED [None]
  - HAEMOGLOBIN DECREASED [None]
  - HEPATIC STEATOSIS [None]
  - HYPERKALAEMIA [None]
  - HYPOTENSION [None]
  - METABOLIC ACIDOSIS [None]
  - MULTI-ORGAN FAILURE [None]
  - MYOGLOBINURIA [None]
  - NECROSIS [None]
  - OLIGURIA [None]
  - PLATELET COUNT DECREASED [None]
  - PROPOFOL INFUSION SYNDROME [None]
  - PROTHROMBIN TIME PROLONGED [None]
  - TRANSAMINASES INCREASED [None]
  - URINE OUTPUT DECREASED [None]
  - WHITE BLOOD CELL COUNT INCREASED [None]
